FAERS Safety Report 8308883-X (Version None)
Quarter: 2012Q2

REPORT INFORMATION
  Report Type: 
  Country: None (occurrence: None)
  Receive Date: 20120424
  Receipt Date: 20120423
  Transmission Date: 20120825
  Serious: Yes (Other)
  Sender: FDA-Public Use
  Company Number: US-BAYER-2012-030709

PATIENT
  Age: 58 Year
  Sex: Female

DRUGS (4)
  1. BETASERON [Suspect]
     Dosage: UNK
     Dates: start: 20021206, end: 20031201
  2. BETASERON [Suspect]
     Indication: RELAPSING-REMITTING MULTIPLE SCLEROSIS
     Dosage: 6 MIU, QOD
     Dates: start: 20120410
  3. BETASERON [Suspect]
     Dosage: 6 MIU, QOD
     Route: 058
     Dates: start: 20120228, end: 20120327
  4. IBUPROFEN [Concomitant]
     Indication: PREMEDICATION

REACTIONS (8)
  - RASH PAPULAR [None]
  - HYPERSENSITIVITY [None]
  - SCAB [None]
  - SKIN INFECTION [None]
  - SECRETION DISCHARGE [None]
  - SKIN EXFOLIATION [None]
  - BLISTER [None]
  - SKIN ULCER [None]
